FAERS Safety Report 22152948 (Version 1)
Quarter: 2023Q1

REPORT INFORMATION
  Report Type: Spontaneous
  Country: US (occurrence: None)
  Receive Date: 20230329
  Receipt Date: 20230329
  Transmission Date: 20230418
  Serious: Yes (Other)
  Sender: FDA-Public Use
  Company Number: None

PATIENT
  Age: 44 Year
  Sex: Male
  Weight: 78.3 kg

DRUGS (1)
  1. ISOVUE [Suspect]
     Active Substance: IOPAMIDOL
     Dosage: OTHER FREQUENCY : ONCE;?
     Route: 040

REACTIONS (3)
  - Urticaria [None]
  - Pruritus [None]
  - Contrast media reaction [None]

NARRATIVE: CASE EVENT DATE: 20230203
